FAERS Safety Report 16163610 (Version 2)
Quarter: 2019Q2

REPORT INFORMATION
  Report Type: Spontaneous
  Country: JP (occurrence: JP)
  Receive Date: 20190405
  Receipt Date: 20190424
  Transmission Date: 20190711
  Serious: No
  Sender: FDA-Public Use
  Company Number: JP-UCBSA-2019014174

PATIENT
  Age: 65 Year
  Sex: Male

DRUGS (2)
  1. E KEPPRA [Suspect]
     Active Substance: LEVETIRACETAM
     Indication: TEMPORAL LOBE EPILEPSY
     Dosage: UNK
     Route: 048
  2. E KEPPRA [Suspect]
     Active Substance: LEVETIRACETAM
     Dosage: 3000MG DAILY
     Route: 048

REACTIONS (1)
  - Therapeutic product effect incomplete [Unknown]
